FAERS Safety Report 24151987 (Version 1)
Quarter: 2024Q3

REPORT INFORMATION
  Report Type: Spontaneous
  Country: KR (occurrence: KR)
  Receive Date: 20240730
  Receipt Date: 20240730
  Transmission Date: 20241017
  Serious: No
  Sender: MERCK
  Company Number: KR-009507513-2407KOR014254

PATIENT
  Sex: Male

DRUGS (1)
  1. LAGEVRIO [Suspect]
     Active Substance: MOLNUPIRAVIR
     Dosage: 4 CAPSULES QD FOR 4 DAYS
     Route: 048

REACTIONS (1)
  - Inappropriate schedule of product administration [Unknown]
